FAERS Safety Report 17201358 (Version 4)
Quarter: 2021Q1

REPORT INFORMATION
  Report Type: Spontaneous
  Country: JP (occurrence: JP)
  Receive Date: 20191226
  Receipt Date: 20210106
  Transmission Date: 20210419
  Serious: Yes (Life-Threatening, Hospitalization, Other)
  Sender: FDA-Public Use
  Company Number: JP-SAKK-2019SA356098AA

PATIENT

DRUGS (5)
  1. MONTELUKAST [MONTELUKAST SODIUM] [Concomitant]
     Active Substance: MONTELUKAST SODIUM
     Indication: PRODUCT USED FOR UNKNOWN INDICATION
     Dosage: 5 MG, QD
     Route: 065
  2. PREDONINE [Concomitant]
     Active Substance: PREDNISOLONE
     Indication: PRODUCT USED FOR UNKNOWN INDICATION
     Dosage: 5 MG, BIW
     Route: 048
  3. DUPIXENT [Suspect]
     Active Substance: DUPILUMAB
     Indication: ASTHMA
     Dosage: 300 MG, QOW
     Route: 058
     Dates: start: 20191018, end: 20191129
  4. SYMBICORT [Concomitant]
     Active Substance: BUDESONIDE\FORMOTEROL FUMARATE DIHYDRATE
     Indication: PRODUCT USED FOR UNKNOWN INDICATION
     Dosage: 8 INHALATIONS/DAY
     Route: 055
  5. PREDONINE [Concomitant]
     Active Substance: PREDNISOLONE
     Indication: EOSINOPHILIC GRANULOMATOSIS WITH POLYANGIITIS
     Dosage: 60MG
     Route: 065

REACTIONS (14)
  - Arthralgia [Recovering/Resolving]
  - Cardiac ventricular thrombosis [Recovering/Resolving]
  - Back pain [Recovering/Resolving]
  - Systolic dysfunction [Recovering/Resolving]
  - Pericardial effusion [Recovering/Resolving]
  - Chest pain [Recovering/Resolving]
  - Cardiac disorder [Recovering/Resolving]
  - Eosinophilic granulomatosis with polyangiitis [Recovering/Resolving]
  - Myalgia [Recovering/Resolving]
  - Pyrexia [Recovered/Resolved]
  - Left ventricular hypertrophy [Recovering/Resolving]
  - Ejection fraction decreased [Recovering/Resolving]
  - Ventricular hypokinesia [Recovering/Resolving]
  - Hypoaesthesia [Recovering/Resolving]

NARRATIVE: CASE EVENT DATE: 201912
